FAERS Safety Report 5393366-X (Version None)
Quarter: 2007Q3

REPORT INFORMATION
  Report Type: 
  Country: None (occurrence: None)
  Receive Date: 20070718
  Receipt Date: 20070718
  Transmission Date: 20080115
  Serious: Yes (Hospitalization)
  Sender: FDA-Public Use
  Company Number: None

PATIENT
  Age: 51 Year
  Sex: Female

DRUGS (11)
  1. TIGECYCLINE 50 MG WYETH [Suspect]
     Indication: KNEE OPERATION
     Dosage: 50 MG EVERY 12 HOURS IV
     Route: 042
     Dates: start: 20070615, end: 20070620
  2. COZAAR [Concomitant]
  3. DYAZIDE [Concomitant]
  4. LIPITOR [Concomitant]
  5. GABAPENTIN [Concomitant]
  6. VICODIN [Concomitant]
  7. SYNTHROID [Concomitant]
  8. OXYCONTIN [Concomitant]
  9. DURAGESIC-100 [Concomitant]
  10. ATIVAN [Concomitant]
  11. ESTROVEN [Concomitant]

REACTIONS (1)
  - PANCREATITIS [None]
